FAERS Safety Report 5129955-7 (Version None)
Quarter: 2006Q4

REPORT INFORMATION
  Report Type: 
  Country: None (occurrence: None)
  Receive Date: 20061012
  Receipt Date: 20061010
  Transmission Date: 20070319
  Serious: Yes (Hospitalization)
  Sender: FDA-Public Use
  Company Number: CAWYE148306OCT06

PATIENT
  Age: 51 Year
  Sex: Female

DRUGS (2)
  1. EFFEXOR XR [Suspect]
     Indication: ANXIETY
     Dosage: 225 MG 1X PER 1 DAY ORAL
     Route: 048
  2. EFFEXOR XR [Suspect]
     Indication: DEPRESSION
     Dosage: 225 MG 1X PER 1 DAY ORAL
     Route: 048

REACTIONS (2)
  - BLOOD PROLACTIN ABNORMAL [None]
  - BREAST CYST [None]
